FAERS Safety Report 16030597 (Version 1)
Quarter: 2019Q1

REPORT INFORMATION
  Report Type: Spontaneous
  Country: US (occurrence: US)
  Receive Date: 20190304
  Receipt Date: 20190304
  Transmission Date: 20190418
  Serious: Yes (Other)
  Sender: FDA-Public Use
  Company Number: US-PFIZER INC-2019078148

PATIENT
  Sex: Female

DRUGS (1)
  1. PREMARIN [Suspect]
     Active Substance: ESTROGENS, CONJUGATED
     Dosage: 0.5 G, 2X/DAY
     Route: 067
     Dates: start: 20190216

REACTIONS (3)
  - Product use issue [Unknown]
  - Vaginal discharge [Unknown]
  - Vaginal haemorrhage [Unknown]
